FAERS Safety Report 6332957-6 (Version None)
Quarter: 2009Q3

REPORT INFORMATION
  Report Type: 
  Country: None (occurrence: None)
  Receive Date: 20090828
  Receipt Date: 20090818
  Transmission Date: 20100115
  Serious: Yes (Other)
  Sender: FDA-Public Use
  Company Number: PHEH2009US07939

PATIENT
  Sex: Female
  Weight: 50.9 kg

DRUGS (4)
  1. EXJADE [Suspect]
     Indication: IRON OVERLOAD
     Dosage: 250 MG, 5QD
     Route: 048
     Dates: start: 20080330, end: 20090428
  2. EXJADE [Suspect]
     Dosage: 500 MG, 5QD
  3. PREDNISONE TAB [Concomitant]
     Dosage: 5 MG, QD
     Route: 048
  4. REVLIMID [Concomitant]
     Dosage: 10 MG, QD

REACTIONS (4)
  - DRUG DISPENSING ERROR [None]
  - LIVER FUNCTION TEST ABNORMAL [None]
  - OVERDOSE [None]
  - RASH [None]
